FAERS Safety Report 9373358 (Version 1)
Quarter: 2013Q2

REPORT INFORMATION
  Report Type: Spontaneous
  Country: FR (occurrence: FR)
  Receive Date: 20130627
  Receipt Date: 20130627
  Transmission Date: 20140414
  Serious: Yes (Other)
  Sender: FDA-Public Use
  Company Number: FR-TEVA-415725ISR

PATIENT
  Sex: Female

DRUGS (1)
  1. FUROSEMIDE TEVA 40 MG [Suspect]
     Indication: HYPERTENSION
     Dosage: 80 MILLIGRAM DAILY; 3 BOXES TOTAL
     Dates: end: 201306

REACTIONS (5)
  - Vertigo [Recovered/Resolved]
  - Fall [Recovered/Resolved]
  - Contusion [Recovered/Resolved]
  - Dysstasia [Recovered/Resolved]
  - Joint dislocation [Recovered/Resolved]
